FAERS Safety Report 8622310-4 (Version None)
Quarter: 2012Q3

REPORT INFORMATION
  Report Type: 
  Country: None (occurrence: None)
  Receive Date: 20120827
  Receipt Date: 20120817
  Transmission Date: 20120928
  Serious: Yes (Hospitalization, Other)
  Sender: FDA-Public Use
  Company Number: US-BIOGENIDEC-2008BI012632

PATIENT
  Age: 56 Year
  Sex: Female

DRUGS (1)
  1. AVONEX [Suspect]
     Indication: MULTIPLE SCLEROSIS
     Route: 030
     Dates: start: 20021125, end: 20080505

REACTIONS (8)
  - NEOPLASM MALIGNANT [None]
  - NON-HODGKIN'S LYMPHOMA [None]
  - ANKLE FRACTURE [None]
  - FALL [None]
  - CONVULSION [None]
  - MEMORY IMPAIRMENT [None]
  - DYSARTHRIA [None]
  - LOSS OF CONTROL OF LEGS [None]
